FAERS Safety Report 5712842-0 (Version None)
Quarter: 2008Q2

REPORT INFORMATION
  Report Type: 
  Country: None (occurrence: None)
  Receive Date: 20080422
  Receipt Date: 20080414
  Transmission Date: 20081010
  Serious: Yes (Congenital Anomaly)
  Sender: FDA-Public Use
  Company Number: A0724161B

PATIENT
  Sex: Male

DRUGS (3)
  1. LAMOTRIGINE [Suspect]
     Indication: BIPOLAR DISORDER
     Dosage: 250MG PER DAY
     Dates: start: 20060501
  2. QUETIAPINE FUMARATE [Concomitant]
     Dosage: 25MG PER DAY
  3. CIPRALEX [Concomitant]
     Dosage: 10MG PER DAY

REACTIONS (2)
  - CONGENITAL FOOT MALFORMATION [None]
  - DRUG EXPOSURE DURING PREGNANCY [None]
